FAERS Safety Report 9614607 (Version 1)
Quarter: 2013Q4

REPORT INFORMATION
  Report Type: Spontaneous
  Country: US (occurrence: None)
  Receive Date: 20131009
  Receipt Date: 20131009
  Transmission Date: 20140711
  Serious: Yes (Other)
  Sender: FDA-Public Use
  Company Number: None

PATIENT
  Age: 37 Year
  Sex: Female
  Weight: 68.04 kg

DRUGS (1)
  1. FLUOXETINE [Suspect]
     Indication: ANXIETY
     Dosage: 20 MG  1X DAY
     Dates: start: 2001

REACTIONS (4)
  - Anxiety [None]
  - Panic attack [None]
  - Palpitations [None]
  - Product substitution issue [None]
